FAERS Safety Report 17827505 (Version 1)
Quarter: 2020Q2

REPORT INFORMATION
  Report Type: Spontaneous
  Country: FR (occurrence: FR)
  Receive Date: 20200527
  Receipt Date: 20200527
  Transmission Date: 20200714
  Serious: Yes (Hospitalization)
  Sender: FDA-Public Use
  Company Number: FR-CADILA HEALTHCARE LIMITED-FR-ZYDUS-023757

PATIENT

DRUGS (10)
  1. GUTRON [Suspect]
     Active Substance: MIDODRINE
     Indication: ORTHOSTATIC HYPOTENSION
     Dosage: 5 MILLIGRAM,(INTERVAL :1 DAYS)
     Route: 048
     Dates: start: 201802
  2. ZOPICLONE [Concomitant]
     Active Substance: ZOPICLONE
  3. BISOPROLOL [Concomitant]
     Active Substance: BISOPROLOL
  4. LEVOTHYROXINE SODIUM. [Concomitant]
     Active Substance: LEVOTHYROXINE SODIUM
  5. FLUINDIONE [Concomitant]
     Active Substance: FLUINDIONE
  6. FUROSEMIDE. [Concomitant]
     Active Substance: FUROSEMIDE
     Dosage: ()
  7. CORDARONE [Suspect]
     Active Substance: AMIODARONE HYDROCHLORIDE
     Indication: ATRIAL FIBRILLATION
     Dosage: 100 MILLIGRAM,1/2 TABLET DAILY,(INTERVAL :1 DAYS)
     Route: 048
     Dates: start: 201611, end: 20180321
  8. ALLOPURINOL. [Suspect]
     Active Substance: ALLOPURINOL
     Indication: HYPERURICAEMIA
     Dosage: 300 MILLIGRAM,(INTERVAL :1 DAYS)
     Route: 048
     Dates: start: 2016, end: 20180321
  9. ALPRAZOLAM. [Concomitant]
     Active Substance: ALPRAZOLAM
  10. POTASSIUM CHLORIDE. [Concomitant]
     Active Substance: POTASSIUM CHLORIDE

REACTIONS (6)
  - Enanthema [Recovering/Resolving]
  - Pruritus [Recovering/Resolving]
  - Keratitis [Recovering/Resolving]
  - Blister [Recovering/Resolving]
  - Toxic skin eruption [Recovering/Resolving]
  - Erythema [Recovering/Resolving]

NARRATIVE: CASE EVENT DATE: 20180313
